FAERS Safety Report 12662088 (Version 1)
Quarter: 2016Q3

REPORT INFORMATION
  Report Type: Report from Study
  Country: BE (occurrence: BE)
  Receive Date: 20160817
  Receipt Date: 20160817
  Transmission Date: 20161109
  Serious: Yes (Other)
  Sender: FDA-Public Use
  Company Number: BE-ABBVIE-13P-013-1083294-00

PATIENT

DRUGS (5)
  1. DUODOPA [Suspect]
     Active Substance: CARBIDOPA\LEVODOPA
     Dosage: DOSAGE CONTINUOUSLY MONITORED AND ADJUSTED
     Route: 050
     Dates: start: 20110106, end: 20130219
  2. DUODOPA [Suspect]
     Active Substance: CARBIDOPA\LEVODOPA
     Dosage: AM= 3 ML; CD= 3.3 ML/H DURING 16 HRS; ND= 2 ML/H DURING 8 HRS;ED= 2.8 ML
     Route: 050
     Dates: start: 20151112
  3. DUODOPA [Suspect]
     Active Substance: CARBIDOPA\LEVODOPA
     Indication: PARKINSON^S DISEASE
     Dosage: AM=8ML, CD=2.9ML/H FOR 16HRS AND ED=3ML
     Route: 050
     Dates: start: 20110103, end: 20110106
  4. DUODOPA [Suspect]
     Active Substance: CARBIDOPA\LEVODOPA
     Dosage: AM DOSE=0ML, CD=3.1ML/H FOR 16HRS AND NIGHT DOSE=3.1ML/H FOR 8HRS AND ED=2.9ML
     Route: 050
     Dates: start: 20130219, end: 20131031
  5. DUODOPA [Suspect]
     Active Substance: CARBIDOPA\LEVODOPA
     Dosage: DOSES CONTINUOUSLY MONITORED AND ADAPTED
     Route: 050
     Dates: start: 20131031, end: 20151112

REACTIONS (2)
  - Weight decreased [Recovering/Resolving]
  - Throat cancer [Unknown]
